FAERS Safety Report 8517557-1 (Version None)
Quarter: 2012Q3

REPORT INFORMATION
  Report Type: 
  Country: None (occurrence: None)
  Receive Date: 20120718
  Receipt Date: 20120706
  Transmission Date: 20120928
  Serious: Yes (Other)
  Sender: FDA-Public Use
  Company Number: US-ROCHE-1034649

PATIENT
  Sex: Male
  Weight: 94.886 kg

DRUGS (2)
  1. ACCUTANE [Suspect]
     Indication: ACNE
     Route: 048
     Dates: start: 19950803
  2. ACCUTANE [Suspect]
     Dosage: DOSE TAPERED
     Dates: start: 19951206

REACTIONS (7)
  - CROHN'S DISEASE [None]
  - URINARY RETENTION [None]
  - ANXIETY [None]
  - INFLAMMATORY BOWEL DISEASE [None]
  - TONSILLITIS [None]
  - DEPRESSION [None]
  - INFECTIOUS MONONUCLEOSIS [None]
